FAERS Safety Report 8199712-6 (Version None)
Quarter: 2012Q1

REPORT INFORMATION
  Report Type: 
  Country: None (occurrence: None)
  Receive Date: 20120311
  Receipt Date: 20120227
  Transmission Date: 20120608
  Serious: Yes (Hospitalization, Other)
  Sender: FDA-Public Use
  Company Number: PHFR2012GB000942

PATIENT
  Sex: Female
  Weight: 72 kg

DRUGS (8)
  1. CLOZARIL [Suspect]
     Indication: PSYCHOTIC DISORDER
  2. DEPAKOTE [Concomitant]
     Indication: AFFECTIVE DISORDER
     Dosage: 1 MG, DAILY
  3. LORAZEPAM [Concomitant]
     Indication: ANXIETY
     Dosage: 1 MG, DAILY
     Route: 048
  4. ARIPIPRAZOLE [Concomitant]
     Dosage: 10 MG, DAILY
     Route: 048
  5. ARIPIPRAZOLE [Concomitant]
     Indication: PSYCHOTIC DISORDER
     Dosage: 15 MG, DAILY
     Route: 048
     Dates: end: 20120124
  6. ACETAMINOPHEN [Concomitant]
     Indication: ANALGESIC THERAPY
     Dosage: 49 MG, DAILY
     Route: 048
  7. CLOZARIL [Suspect]
     Indication: SCHIZOPHRENIA
     Route: 048
     Dates: start: 20120116, end: 20120127
  8. LORAZEPAM [Concomitant]
     Indication: AGITATION

REACTIONS (5)
  - URINARY INCONTINENCE [None]
  - CONFUSIONAL STATE [None]
  - URINARY TRACT INFECTION [None]
  - MOVEMENT DISORDER [None]
  - DYSARTHRIA [None]
